FAERS Safety Report 12572973 (Version 1)
Quarter: 2016Q3

REPORT INFORMATION
  Report Type: Spontaneous
  Country: FR (occurrence: FR)
  Receive Date: 20160720
  Receipt Date: 20160720
  Transmission Date: 20161109
  Serious: Yes (Hospitalization)
  Sender: FDA-Public Use
  Company Number: FR-ROCHE-1797508

PATIENT
  Age: 42 Year
  Sex: Male

DRUGS (6)
  1. TERCIAN [Suspect]
     Active Substance: CYAMEMAZINE
     Indication: ALCOHOLISM
     Route: 048
     Dates: start: 20160101
  2. SELINCRO [Suspect]
     Active Substance: NALMEFENE HYDROCHLORIDE DIHYDRATE
     Indication: ALCOHOLISM
     Route: 048
     Dates: start: 201601
  3. DUPHALAC (FRANCE) [Suspect]
     Active Substance: LACTULOSE
     Indication: CONSTIPATION
     Route: 048
     Dates: start: 201601
  4. ESPERAL [Suspect]
     Active Substance: DISULFIRAM
     Indication: ALCOHOLISM
     Route: 048
     Dates: start: 201601
  5. EFFEXOR [Suspect]
     Active Substance: VENLAFAXINE HYDROCHLORIDE
     Indication: DEPRESSION
     Dosage: FOR AT LEAST 2 YEARS
     Route: 048
  6. VALIUM [Suspect]
     Active Substance: DIAZEPAM
     Indication: ANXIETY
     Route: 048
     Dates: start: 201601

REACTIONS (1)
  - Renal infarct [Not Recovered/Not Resolved]

NARRATIVE: CASE EVENT DATE: 20160419
